FAERS Safety Report 9709856 (Version 1)
Quarter: 2013Q4

REPORT INFORMATION
  Report Type: Spontaneous
  Country: US (occurrence: US)
  Receive Date: 20131126
  Receipt Date: 20131126
  Transmission Date: 20140711
  Serious: No
  Sender: FDA-Public Use
  Company Number: US-PFIZER INC-2013335436

PATIENT
  Sex: Female

DRUGS (2)
  1. LEVOTHYROXINE SODIUM [Suspect]
     Dosage: 50 UG, UNK
     Dates: start: 2013
  2. LEVOTHYROXINE SODIUM [Suspect]
     Dosage: 75 UG, UNK
     Dates: start: 201311

REACTIONS (1)
  - Drug ineffective [Not Recovered/Not Resolved]
